FAERS Safety Report 4920512-1 (Version None)
Quarter: 2006Q1

REPORT INFORMATION
  Report Type: 
  Country: None (occurrence: None)
  Receive Date: 20060217
  Receipt Date: 20060213
  Transmission Date: 20060701
  Serious: Yes (Other)
  Sender: FDA-Public Use
  Company Number: 2006US000151

PATIENT
  Age: 38 Year
  Sex: Female

DRUGS (2)
  1. PROTOPIC [Suspect]
     Dosage: TOPICAL
     Route: 061
  2. ELIDEL [Suspect]

REACTIONS (1)
  - BREAST CANCER FEMALE [None]
